FAERS Safety Report 18583589 (Version 1)
Quarter: 2020Q4

REPORT INFORMATION
  Report Type: Spontaneous
  Country: US (occurrence: US)
  Receive Date: 20201207
  Receipt Date: 20201207
  Transmission Date: 20210114
  Serious: Yes (Hospitalization)
  Sender: FDA-Public Use
  Company Number: US-BIOGEN-2020BI00952262

PATIENT
  Sex: Female

DRUGS (1)
  1. TECFIDERA [Suspect]
     Active Substance: DIMETHYL FUMARATE
     Indication: MULTIPLE SCLEROSIS
     Route: 048
     Dates: start: 20140115

REACTIONS (5)
  - Peripheral swelling [Unknown]
  - Urinary tract infection [Unknown]
  - Cellulitis [Unknown]
  - Multiple sclerosis relapse [Unknown]
  - Pain [Unknown]
